FAERS Safety Report 19115843 (Version 1)
Quarter: 2021Q2

REPORT INFORMATION
  Report Type: Spontaneous
  Country: CA (occurrence: CA)
  Receive Date: 20210409
  Receipt Date: 20210409
  Transmission Date: 20210717
  Serious: Yes (Hospitalization, Other)
  Sender: FDA-Public Use
  Company Number: CA-PFIZER INC-2017498926

PATIENT
  Age: 51 Year
  Sex: Female

DRUGS (11)
  1. XELJANZ [Suspect]
     Active Substance: TOFACITINIB CITRATE
     Dosage: 5 MG, 2X/DAY
     Route: 048
     Dates: start: 2019, end: 202002
  2. NEXIUM [Concomitant]
     Active Substance: ESOMEPRAZOLE MAGNESIUM
     Indication: ABDOMINAL DISCOMFORT
     Dosage: UNK
  3. PREDNISONE. [Concomitant]
     Active Substance: PREDNISONE
     Dosage: UNK (TAPERING DOSES)
  4. LEFLUNOMIDE. [Concomitant]
     Active Substance: LEFLUNOMIDE
     Indication: RHEUMATOID ARTHRITIS
     Dosage: 20 MG, DAILY
     Dates: start: 20170321, end: 20171208
  5. XELJANZ [Suspect]
     Active Substance: TOFACITINIB CITRATE
     Indication: RHEUMATOID ARTHRITIS
     Dosage: 5 MG, 2X/DAY
     Route: 048
     Dates: start: 20171113, end: 20190322
  6. COVERSYL [Concomitant]
     Active Substance: PERINDOPRIL
     Indication: HYPERTENSION
     Dosage: 4 MG, UNK (EVERY)
  7. MORPHINE [Concomitant]
     Active Substance: MORPHINE
     Dosage: UNK
     Dates: start: 2019
  8. XELJANZ [Suspect]
     Active Substance: TOFACITINIB CITRATE
     Dosage: 5 MG, 2X/DAY
     Route: 048
     Dates: start: 20200803
  9. METROGEL [Concomitant]
     Active Substance: METRONIDAZOLE
     Dosage: UNK, FACE
     Route: 061
  10. PERINDOPRIL [Concomitant]
     Active Substance: PERINDOPRIL
     Indication: HYPERTENSION
     Dosage: 4 MG, UNK (EVERY)
  11. PREDNISONE. [Concomitant]
     Active Substance: PREDNISONE
     Dosage: 10 MG, DAILY

REACTIONS (19)
  - Therapeutic product effect incomplete [Not Recovered/Not Resolved]
  - Musculoskeletal chest pain [Unknown]
  - Skin plaque [Unknown]
  - Diarrhoea [Recovering/Resolving]
  - Toothache [Unknown]
  - Dyspepsia [Unknown]
  - Condition aggravated [Unknown]
  - Diverticulitis [Not Recovered/Not Resolved]
  - Nausea [Recovering/Resolving]
  - Nasopharyngitis [Not Recovered/Not Resolved]
  - General physical health deterioration [Unknown]
  - Tooth fracture [Unknown]
  - Abdominal pain [Unknown]
  - Acne [Not Recovered/Not Resolved]
  - Vomiting [Not Recovered/Not Resolved]
  - Insomnia [Not Recovered/Not Resolved]
  - Fatigue [Unknown]
  - Abdominal pain upper [Unknown]
  - Condition aggravated [Unknown]

NARRATIVE: CASE EVENT DATE: 201711
